FAERS Safety Report 17587066 (Version 1)
Quarter: 2020Q1

REPORT INFORMATION
  Report Type: Spontaneous
  Country: US (occurrence: US)
  Receive Date: 20200326
  Receipt Date: 20200326
  Transmission Date: 20200409
  Serious: Yes (Other)
  Sender: FDA-Public Use
  Company Number: US-OCULAR THERAPEUTIX-2020OCX00010

PATIENT

DRUGS (1)
  1. DEXTENZA [Suspect]
     Active Substance: DEXAMETHASONE
     Dosage: UNK

REACTIONS (3)
  - Surgery [Unknown]
  - Dacryocanaliculitis [Unknown]
  - Intraocular pressure increased [Unknown]

NARRATIVE: CASE EVENT DATE: 202002
